FAERS Safety Report 14897791 (Version 3)
Quarter: 2018Q2

REPORT INFORMATION
  Report Type: Spontaneous
  Country: JP (occurrence: JP)
  Receive Date: 20180515
  Receipt Date: 20180628
  Transmission Date: 20180711
  Serious: Yes (Hospitalization, Other)
  Sender: FDA-Public Use
  Company Number: JP-BRISTOL-MYERS SQUIBB COMPANY-BMS-2018-025692

PATIENT
  Age: 69 Year
  Sex: Female

DRUGS (1)
  1. OPDIVO [Suspect]
     Active Substance: NIVOLUMAB
     Indication: HEAD AND NECK CANCER
     Dosage: 3 MG/KG, Q2WK
     Route: 041
     Dates: start: 20180220, end: 20180220

REACTIONS (6)
  - Malignant neoplasm progression [Unknown]
  - Pleural effusion [Unknown]
  - Interstitial lung disease [Recovered/Resolved]
  - Bronchiectasis [Unknown]
  - Cardiomegaly [Unknown]
  - Aspergillus test positive [Unknown]

NARRATIVE: CASE EVENT DATE: 20180301
